FAERS Safety Report 8271854-6 (Version None)
Quarter: 2012Q2

REPORT INFORMATION
  Report Type: 
  Country: None (occurrence: None)
  Receive Date: 20120410
  Receipt Date: 20120327
  Transmission Date: 20120825
  Serious: Yes (Other)
  Sender: FDA-Public Use
  Company Number: US-ROCHE-1053716

PATIENT
  Sex: Female

DRUGS (2)
  1. MORPHINE [Concomitant]
     Indication: PAIN
     Route: 048
  2. XELODA [Suspect]
     Indication: COLORECTAL CANCER METASTATIC
     Route: 048
     Dates: start: 20120322

REACTIONS (4)
  - GAIT DISTURBANCE [None]
  - FATIGUE [None]
  - PAIN [None]
  - FALL [None]
